FAERS Safety Report 6679912-4 (Version None)
Quarter: 2010Q2

REPORT INFORMATION
  Report Type: 
  Country: None (occurrence: None)
  Receive Date: 20100413
  Receipt Date: 20100402
  Transmission Date: 20101027
  Serious: No
  Sender: FDA-Public Use
  Company Number: US-B.I. PHARMACEUTICALS,INC./RIDGEFIELD-2010-BP-04086BP

PATIENT
  Sex: Female
  Weight: 67.13 kg

DRUGS (11)
  1. FLOMAX [Suspect]
     Indication: URINARY HESITATION
     Dosage: 8 MG
  2. TYSABRI [Concomitant]
     Indication: MULTIPLE SCLEROSIS
     Dates: start: 20090601
  3. ESTRATEST [Concomitant]
  4. MIRAPEX [Concomitant]
     Dosage: 1.75 MG
  5. NEURONTIN [Concomitant]
     Dosage: 2400 MG
  6. PHENTERMINE [Concomitant]
     Dosage: 17.5 MG
     Route: 048
  7. CYMBALTA [Concomitant]
     Dosage: 60 MG
  8. CLONAZEPAM [Concomitant]
     Dosage: 0.5 MG
  9. ZOFRAN [Concomitant]
  10. DDAVP [Concomitant]
  11. IMITREX [Concomitant]

REACTIONS (4)
  - FALL [None]
  - LOSS OF CONSCIOUSNESS [None]
  - ORTHOSTATIC HYPOTENSION [None]
  - SYNCOPE [None]
